FAERS Safety Report 19419987 (Version 1)
Quarter: 2021Q2

REPORT INFORMATION
  Report Type: Spontaneous
  Country: PL (occurrence: PL)
  Receive Date: 20210616
  Receipt Date: 20210616
  Transmission Date: 20210717
  Serious: Yes (Hospitalization, Other)
  Sender: FDA-Public Use
  Company Number: PL-AUROBINDO-AUR-APL-2021-024537

PATIENT
  Age: 55 Year
  Sex: Male
  Weight: 85 kg

DRUGS (14)
  1. DIGOXIN. [Concomitant]
     Active Substance: DIGOXIN
     Indication: PRODUCT USED FOR UNKNOWN INDICATION
     Dosage: 1 DOSAGE FORM(1 DF(1*0.1MG))
     Route: 065
     Dates: start: 202010, end: 202103
  2. BISOPROLOL [Suspect]
     Active Substance: BISOPROLOL
     Dosage: 2 DOSAGE FORM(2 DF (5 MG))
     Route: 065
     Dates: start: 201704
  3. RAMIPRIL. [Suspect]
     Active Substance: RAMIPRIL
     Dosage: 2 DOSAGE FORM(2 DF (5 MG))
     Route: 065
     Dates: start: 201704
  4. TORASEMIDE [Suspect]
     Active Substance: TORSEMIDE
     Indication: PRODUCT USED FOR UNKNOWN INDICATION
     Dosage: 1 DOSAGE FORM(1 DF (5 MG))
     Route: 065
     Dates: start: 201701
  5. SACUBITRIL VALSARTAN SODIUM [Suspect]
     Active Substance: SACUBITRIL\VALSARTAN
     Dosage: 2 DOSAGE FORM(2X49/51MG)
     Route: 065
     Dates: start: 202007
  6. TORASEMIDE [Suspect]
     Active Substance: TORSEMIDE
     Dosage: 1 DOSAGE FORM(1 DF (5 MG))
     Route: 065
     Dates: start: 202010
  7. POLPRIL [Concomitant]
     Active Substance: RAMIPRIL
     Indication: PRODUCT USED FOR UNKNOWN INDICATION
     Dosage: UNK
     Route: 065
     Dates: end: 202005
  8. AMIODARONE [Concomitant]
     Active Substance: AMIODARONE
     Indication: PRODUCT USED FOR UNKNOWN INDICATION
     Dosage: 1 DOSAGE FORM(1 DF (200 MG))
     Route: 065
     Dates: start: 202003
  9. IVABRADINE [Concomitant]
     Active Substance: IVABRADINE
     Indication: PRODUCT USED FOR UNKNOWN INDICATION
     Dosage: 2 DOSAGE FORM(2 DF (5 MG))
     Route: 065
     Dates: start: 201709, end: 202003
  10. EPLERENONE. [Concomitant]
     Active Substance: EPLERENONE
     Indication: PRODUCT USED FOR UNKNOWN INDICATION
     Dosage: 1 DOSAGE FORM(1 DF (25 MG))
     Route: 065
     Dates: start: 201701
  11. BISOPROLOL [Suspect]
     Active Substance: BISOPROLOL
     Indication: PRODUCT USED FOR UNKNOWN INDICATION
     Dosage: 1 DOSAGE FORM(1 DF (5 MG))
     Route: 065
     Dates: start: 201701
  12. DABIGATRAN [Concomitant]
     Active Substance: DABIGATRAN
     Indication: PRODUCT USED FOR UNKNOWN INDICATION
     Dosage: 2 DOSAGE FORM(2 DF (150 MG))
     Route: 065
     Dates: start: 201709
  13. RAMIPRIL. [Suspect]
     Active Substance: RAMIPRIL
     Indication: PRODUCT USED FOR UNKNOWN INDICATION
     Dosage: 1 DOSAGE FORM(1 DF (5 MG) )
     Route: 065
     Dates: start: 201701
  14. SACUBITRIL VALSARTAN SODIUM [Suspect]
     Active Substance: SACUBITRIL\VALSARTAN
     Indication: PRODUCT USED FOR UNKNOWN INDICATION
     Dosage: 2 DOSAGE FORM(2X24/25MG)
     Route: 065
     Dates: start: 202005

REACTIONS (11)
  - Medical device site infection [Recovered/Resolved]
  - Decubitus ulcer [Recovered/Resolved]
  - Breath sounds abnormal [Unknown]
  - Peripheral swelling [Recovered/Resolved]
  - Medical device site discharge [Unknown]
  - Heart rate irregular [Recovering/Resolving]
  - Atrial fibrillation [Recovering/Resolving]
  - N-terminal prohormone brain natriuretic peptide increased [Unknown]
  - Palpitations [Recovering/Resolving]
  - Cardiac murmur [Unknown]
  - Cardiac failure chronic [Recovering/Resolving]

NARRATIVE: CASE EVENT DATE: 201704
